FAERS Safety Report 9729473 (Version 2)
Quarter: 2015Q3

REPORT INFORMATION
  Report Type: Spontaneous
  Country: US (occurrence: US)
  Receive Date: 20131204
  Receipt Date: 20150804
  Transmission Date: 20151125
  Serious: No
  Sender: FDA-Public Use
  Company Number: US-GILEAD-2009-0021501

PATIENT
  Age: 66 Year
  Sex: Female
  Weight: 117.93 kg

DRUGS (5)
  1. OXYGEN. [Concomitant]
     Active Substance: OXYGEN
  2. LASIX [Concomitant]
     Active Substance: FUROSEMIDE
  3. SPIRONOLACTONE. [Concomitant]
     Active Substance: SPIRONOLACTONE
  4. POTASSIUM CHLORIDE. [Concomitant]
     Active Substance: POTASSIUM CHLORIDE
  5. LETAIRIS [Suspect]
     Active Substance: AMBRISENTAN
     Indication: PULMONARY ARTERIAL HYPERTENSION
     Route: 048
     Dates: start: 20071121

REACTIONS (5)
  - Dizziness [Unknown]
  - Nasal congestion [Unknown]
  - Hot flush [Unknown]
  - Oedema [Unknown]
  - Dyspnoea [Unknown]
